FAERS Safety Report 7481218-0 (Version None)
Quarter: 2011Q2

REPORT INFORMATION
  Report Type: 
  Country: None (occurrence: None)
  Receive Date: 20110512
  Receipt Date: 20110512
  Transmission Date: 20111010
  Serious: Yes (Other)
  Sender: FDA-Public Use
  Company Number: None

PATIENT
  Age: 63 Year
  Sex: Female
  Weight: 64.8644 kg

DRUGS (1)
  1. RECLAST [Suspect]
     Indication: OSTEOPOROSIS PROPHYLAXIS
     Dosage: 5 MG INFUSION ONCE/YEARLY IV
     Route: 042
     Dates: start: 20110407

REACTIONS (11)
  - BACK PAIN [None]
  - HEADACHE [None]
  - CHILLS [None]
  - PYREXIA [None]
  - PAIN IN EXTREMITY [None]
  - VOMITING [None]
  - BONE PAIN [None]
  - NECK PAIN [None]
  - ARTHRALGIA [None]
  - NAUSEA [None]
  - MYALGIA [None]
